FAERS Safety Report 4991695-2 (Version None)
Quarter: 2006Q2

REPORT INFORMATION
  Report Type: 
  Country: None (occurrence: None)
  Receive Date: 20060504
  Receipt Date: 20060501
  Transmission Date: 20061013
  Serious: Yes (Other)
  Sender: FDA-Public Use
  Company Number: US-GLAXOSMITHKLINE-A0603854A

PATIENT
  Sex: Male

DRUGS (2)
  1. ZOFRAN [Suspect]
     Indication: SCHIZOPHRENIA
     Dosage: 16MG PER DAY
     Route: 048
  2. RISPERDAL [Concomitant]

REACTIONS (5)
  - ABNORMAL BEHAVIOUR [None]
  - ADVERSE DRUG REACTION [None]
  - AMNESIA [None]
  - DIFFICULTY IN WALKING [None]
  - HALLUCINATION, AUDITORY [None]
